FAERS Safety Report 10187075 (Version 2)
Quarter: 2014Q3

REPORT INFORMATION
  Report Type: Report from Study
  Country: CA (occurrence: CA)
  Receive Date: 20140522
  Receipt Date: 20140704
  Transmission Date: 20150326
  Serious: Yes (Other)
  Sender: FDA-Public Use
  Company Number: CA-BRISTOL-MYERS SQUIBB COMPANY-20659330

PATIENT
  Age: 67 Year
  Sex: Female

DRUGS (8)
  1. MISOPROSTOL. [Concomitant]
     Active Substance: MISOPROSTOL
  2. ORENCIA [Suspect]
     Active Substance: ABATACEPT
     Indication: RHEUMATOID ARTHRITIS
     Dosage: 1DF = 750 UNIT NOS?ONGOING
     Route: 042
     Dates: start: 20130315
  3. VITAMINS [Concomitant]
     Active Substance: VITAMINS
  4. FOLIC ACID. [Concomitant]
     Active Substance: FOLIC ACID
  5. METHOTREXATE [Suspect]
     Active Substance: METHOTREXATE
  6. CYTOTEC [Concomitant]
     Active Substance: MISOPROSTOL
  7. NAPROXEN. [Concomitant]
     Active Substance: NAPROXEN
  8. RISEDRONATE SODIUM. [Concomitant]
     Active Substance: RISEDRONATE SODIUM

REACTIONS (7)
  - Presyncope [Unknown]
  - Vomiting [Unknown]
  - Balance disorder [Unknown]
  - Asthenia [Unknown]
  - Atrial flutter [Unknown]
  - Influenza [Unknown]
  - Nausea [Unknown]

NARRATIVE: CASE EVENT DATE: 2014
